FAERS Safety Report 4774427-2 (Version None)
Quarter: 2005Q3

REPORT INFORMATION
  Report Type: 
  Country: None (occurrence: None)
  Receive Date: 20050921
  Receipt Date: 20050912
  Transmission Date: 20060218
  Serious: Yes (Death)
  Sender: FDA-Public Use
  Company Number: KR-JNJFOC-20050903305

PATIENT
  Sex: Female
  Weight: 50 kg

DRUGS (2)
  1. REMINYL PR [Suspect]
     Route: 048
     Dates: start: 20050520, end: 20050722
  2. REMINYL PR [Suspect]
     Indication: DEMENTIA ALZHEIMER'S TYPE
     Route: 048
     Dates: start: 20050520, end: 20050722

REACTIONS (1)
  - CARDIAC ARREST [None]
